FAERS Safety Report 8465107-0 (Version None)
Quarter: 2012Q2

REPORT INFORMATION
  Report Type: 
  Country: None (occurrence: None)
  Receive Date: 20120626
  Receipt Date: 20120622
  Transmission Date: 20120825
  Serious: Yes (Death, Life-Threatening, Hospitalization, Other)
  Sender: FDA-Public Use
  Company Number: JP-BAYER-2012-039506

PATIENT
  Age: 59 Year
  Sex: Male
  Weight: 64 kg

DRUGS (18)
  1. AMARYL [Concomitant]
     Dosage: DAILY DOSE 3 MG
     Route: 048
  2. NEXAVAR [Suspect]
     Dosage: 200 MG, QD
     Dates: start: 20111124, end: 20111206
  3. NEXAVAR [Suspect]
     Dosage: 400 MG, QOD
     Dates: start: 20111214, end: 20120207
  4. JANUVIA [Concomitant]
     Dosage: DAILY DOSE 50 MG
     Route: 048
  5. IODINE [Concomitant]
     Dosage: UNK
     Route: 061
     Dates: start: 20111108
  6. MUCOSTA [Concomitant]
     Dosage: 100 MG, PRN
     Route: 048
     Dates: start: 20111014
  7. SP [Concomitant]
     Dosage: 1.5 MG, PRN
     Route: 048
     Dates: start: 20111025
  8. BETAMETHASONE SODIUM PHOSPHATE [Concomitant]
     Dosage: UNK
     Route: 061
     Dates: start: 20111108
  9. NEXAVAR [Suspect]
     Indication: HEPATIC NEOPLASM MALIGNANT
     Dosage: 400 MG, QD
     Route: 048
     Dates: start: 20111011, end: 20111124
  10. CLEANAL [Concomitant]
     Dosage: DAILY DOSE 600 MG
     Route: 048
     Dates: start: 20111228
  11. MINOCYCLINE HYDROCHLORIDE [Concomitant]
     Dosage: DAILY DOSE 100 MG
     Route: 048
     Dates: start: 20111108, end: 20111205
  12. ROZEREM [Concomitant]
     Dosage: DAILY DOSE 8 MG
     Route: 048
     Dates: start: 20111215
  13. PL GRAN. [Concomitant]
     Dosage: 3 G, PRN
     Route: 048
     Dates: start: 20111025
  14. XYZAL [Concomitant]
     Dosage: DAILY DOSE 5 MG
     Route: 048
     Dates: start: 20111108, end: 20111121
  15. BARACLUDE [Concomitant]
     Dosage: DAILY DOSE .5 MG
     Route: 048
  16. ELPINAN [Concomitant]
     Dosage: DAILY DOSE 20 MG
     Route: 048
     Dates: start: 20111122, end: 20111205
  17. LOXONIN [Concomitant]
     Dosage: DAILY DOSE 60 MG
     Route: 048
  18. HALCION [Concomitant]
     Dosage: DAILY DOSE .5 MG
     Route: 048

REACTIONS (4)
  - PNEUMONIA [None]
  - HEPATIC NEOPLASM MALIGNANT [None]
  - HEPATIC FAILURE [None]
  - HEPATIC ENCEPHALOPATHY [None]
